FAERS Safety Report 7366777-0 (Version None)
Quarter: 2011Q1

REPORT INFORMATION
  Report Type: 
  Country: None (occurrence: None)
  Receive Date: 20110322
  Receipt Date: 20110318
  Transmission Date: 20110831
  Serious: Yes (Life-Threatening)
  Sender: FDA-Public Use
  Company Number: IT-PFIZER INC-2011059853

PATIENT
  Age: 53 Year
  Sex: Female

DRUGS (1)
  1. UNASYN [Suspect]
     Indication: DERMO-HYPODERMITIS
     Dosage: 9 G, 1X/DAY
     Route: 042
     Dates: start: 20110302, end: 20110302

REACTIONS (1)
  - DYSPNOEA [None]
